FAERS Safety Report 8156934-8 (Version None)
Quarter: 2012Q1

REPORT INFORMATION
  Report Type: 
  Country: None (occurrence: None)
  Receive Date: 20120222
  Receipt Date: 20120215
  Transmission Date: 20120608
  Serious: Yes (Hospitalization, Other)
  Sender: FDA-Public Use
  Company Number: SA-ALEXION PHARMACEUTICALS INC.-A201200290

PATIENT
  Sex: Female
  Weight: 17 kg

DRUGS (3)
  1. SOLIRIS [Suspect]
     Dosage: UNK
  2. SOLIRIS [Suspect]
     Indication: HAEMOLYTIC URAEMIC SYNDROME
     Dosage: 300 MG, QW
     Route: 042
     Dates: start: 20111205
  3. PENICILLIN [Concomitant]
     Indication: PROPHYLAXIS
     Dosage: 250 UNK, UNK
     Route: 048
     Dates: start: 20111204, end: 20111211

REACTIONS (2)
  - MENINGOCOCCAL SEPSIS [None]
  - HYPERTENSION [None]
